FAERS Safety Report 10214469 (Version 2)
Quarter: 2014Q2

REPORT INFORMATION
  Report Type: Spontaneous
  Country: US (occurrence: US)
  Receive Date: 20140603
  Receipt Date: 20140603
  Transmission Date: 20141212
  Serious: No
  Sender: FDA-Public Use
  Company Number: US-MYLANLABS-2014S1001419

PATIENT
  Age: 57 Year
  Sex: Male

DRUGS (12)
  1. PRAZOSIN HYDROCHLORIDE CAPSULES, USP [Suspect]
     Indication: PROSTATIC DISORDER
     Route: 048
     Dates: start: 20140114, end: 20140119
  2. PRAZOSIN HYDROCHLORIDE CAPSULES, USP [Suspect]
     Indication: URINARY HESITATION
     Route: 048
     Dates: start: 20140114, end: 20140119
  3. METFORMIN [Concomitant]
  4. LISINOPRIL [Concomitant]
  5. PRAVACHOL [Concomitant]
  6. GABAPENTIN [Concomitant]
  7. WELLBUTRIN [Concomitant]
  8. CITALOPRAM [Concomitant]
  9. TRAZODONE [Concomitant]
  10. ABILIFY [Concomitant]
  11. ZOLPIDEM [Concomitant]
  12. NITROSTAT [Concomitant]

REACTIONS (2)
  - Diarrhoea [Recovered/Resolved]
  - Micturition urgency [Recovered/Resolved]
